FAERS Safety Report 4789884-5 (Version None)
Quarter: 2005Q3

REPORT INFORMATION
  Report Type: 
  Country: None (occurrence: None)
  Receive Date: 20050914
  Receipt Date: 20040922
  Transmission Date: 20060218
  Serious: Yes (Death)
  Sender: FDA-Public Use
  Company Number: 163-20785-04090591

PATIENT
  Age: 47 Year
  Sex: Female

DRUGS (1)
  1. THALIDOMID (THALIDOMIDE) (50 MILLIGRAM, CAPSULES) [Suspect]
     Indication: METASTASES TO CENTRAL NERVOUS SYSTEM
     Dosage: 50 MG DAILY FOR ONE WEEK, THEN 100 MG DAILY FOR ONE WEEK, ORAL
     Route: 048
     Dates: start: 20040318, end: 20040401

REACTIONS (3)
  - DEATH [None]
  - DISEASE PROGRESSION [None]
  - RESPIRATORY FAILURE [None]
